FAERS Safety Report 8816441 (Version 1)
Quarter: 2012Q4

REPORT INFORMATION
  Report Type: Spontaneous
  Country: GB (occurrence: None)
  Receive Date: 20120927
  Receipt Date: 20120927
  Transmission Date: 20130627
  Serious: Yes (Other)
  Sender: FDA-Public Use
  Company Number: FK201202786

PATIENT
  Age: 7 Year
  Sex: Male
  Weight: 17.4 kg

DRUGS (6)
  1. CEFUROXIME [Suspect]
     Indication: HAEMOPHILUS INFECTION
     Route: 042
     Dates: start: 20120821, end: 20120821
  2. AMOXICILLIN + CLAVULANIC ACID [Suspect]
     Indication: PRODUCT USED FOR UNKNOWN INDICATION
  3. FLUTICASONE [Concomitant]
  4. MONTELUKAST (MONTELUKAST) [Concomitant]
  5. DORNASE ALFA (DORNASE ALFA) [Concomitant]
  6. FLUTICASONE W/SALMETEROL (GALENIC/FLUTICASONE/SALMETEROL/) [Concomitant]

REACTIONS (5)
  - Abdominal pain [None]
  - Muscle spasms [None]
  - Nausea [None]
  - Aspartate aminotransferase increased [None]
  - Pyrexia [None]
